FAERS Safety Report 6796202 (Version 2)
Quarter: 2014Q1

REPORT INFORMATION
  Report Type: Spontaneous
  Country: US (occurrence: None)
  Receive Date: 20080909
  Receipt Date: 20131219
  Transmission Date: 20141002
  Serious: Yes (Life-Threatening, Hospitalization)
  Sender: FDA-Public Use
  Company Number: 163-20785-05070311

PATIENT
  Age: 50 Year
  Sex: Male

DRUGS (2)
  1. THALOMID [Suspect]
     Indication: PLASMA CELL MYELOMA
     Dosage: 200 MG, QHS, ORAL; 100 MG, 1 IN 1 D, ORAL
     Route: 048
     Dates: start: 20050608, end: 200507
  2. DEXAMETHASONE [Suspect]
     Indication: PLASMA CELL MYELOMA
     Dosage: MG, DAILY X4 DAYS, Q2 WEEKS, ORAL
     Route: 048
     Dates: start: 20050608, end: 200507

REACTIONS (7)
  - Pulmonary embolism [None]
  - Pain in extremity [None]
  - Chest pain [None]
  - Dyspnoea [None]
  - Bradycardia [None]
  - Deep vein thrombosis [None]
  - Oedema peripheral [None]
